FAERS Safety Report 21138490 (Version 1)
Quarter: 2022Q3

REPORT INFORMATION
  Report Type: Spontaneous
  Country: US (occurrence: None)
  Receive Date: 20220727
  Receipt Date: 20220727
  Transmission Date: 20221027
  Serious: Yes (Hospitalization, Other)
  Sender: FDA-Public Use
  Company Number: None

PATIENT
  Age: 28 Year
  Sex: Female

DRUGS (1)
  1. GILENYA [Suspect]
     Active Substance: FINGOLIMOD HYDROCHLORIDE
     Indication: Multiple sclerosis
     Dosage: FREQU0.5MG DAILY ORAL
     Route: 048
     Dates: start: 201512

REACTIONS (4)
  - Product dose omission in error [None]
  - Product dose omission in error [None]
  - Skin reaction [None]
  - Wrong schedule [None]

NARRATIVE: CASE EVENT DATE: 20160602
